FAERS Safety Report 18242780 (Version 1)
Quarter: 2020Q3

REPORT INFORMATION
  Report Type: Report from Study
  Country: None (occurrence: US)
  Receive Date: 20200908
  Receipt Date: 20200908
  Transmission Date: 20201103
  Serious: Yes (Hospitalization, Other)
  Sender: FDA-Public Use
  Company Number: US-BIOVITRUM-2020US4659

PATIENT
  Sex: Male

DRUGS (1)
  1. ORFADIN [Suspect]
     Active Substance: NITISINONE
     Indication: TYROSINAEMIA
     Dosage: 1.5 ML
     Route: 048
     Dates: start: 20191222

REACTIONS (8)
  - Treatment noncompliance [Unknown]
  - Tyrosinaemia [Unknown]
  - Hepatic cirrhosis [Unknown]
  - Succinylacetone increased [Unknown]
  - Diet noncompliance [Unknown]
  - Liver injury [Unknown]
  - Condition aggravated [Unknown]
  - Therapy non-responder [Unknown]
